FAERS Safety Report 5812117-5 (Version None)
Quarter: 2008Q3

REPORT INFORMATION
  Report Type: 
  Country: None (occurrence: None)
  Receive Date: 20080716
  Receipt Date: 20080707
  Transmission Date: 20090109
  Serious: Yes (Hospitalization)
  Sender: FDA-Public Use
  Company Number: US-WATSON-2007-01684

PATIENT
  Sex: Female

DRUGS (7)
  1. PREDNISONE (WATSON LABORATORIES) [Suspect]
     Indication: ADVERSE DRUG REACTION
     Dosage: 2 TABLETS, BID
     Route: 048
     Dates: start: 20070126
  2. PREDNISONE (WATSON LABORATORIES) [Suspect]
     Dosage: 1 TABLET, BID
     Route: 048
     Dates: start: 20070118, end: 20070301
  3. PREDNISONE (WATSON LABORATORIES) [Suspect]
     Dosage: 40 MG, SINGLE (1 DOSE IN ER)
     Dates: start: 20070117, end: 20070117
  4. PEPCID [Concomitant]
     Indication: ADVERSE DRUG REACTION
     Dosage: 20 MG, UNKNOWN
     Route: 048
     Dates: start: 20070117, end: 20070301
  5. HYDROCHLOROTHIAZIDE [Concomitant]
     Indication: BLOOD PRESSURE
     Dosage: UNK
     Route: 048
     Dates: start: 20010101
  6. RESTORIL                           /00393701/ [Concomitant]
     Indication: INSOMNIA
     Dosage: PRN
     Route: 048
  7. MACRIBID [Suspect]
     Indication: DRUG USE FOR UNKNOWN INDICATION
     Dosage: ^2 PER DAY^
     Route: 048
     Dates: start: 20070111, end: 20070117

REACTIONS (17)
  - ABASIA [None]
  - ARTHRALGIA [None]
  - CONDITION AGGRAVATED [None]
  - DRY EYE [None]
  - DRY SKIN [None]
  - ERYTHEMA [None]
  - FAT TISSUE INCREASED [None]
  - FATIGUE [None]
  - KNEE OPERATION [None]
  - MALAISE [None]
  - MOBILITY DECREASED [None]
  - OCULAR HYPERAEMIA [None]
  - PAIN [None]
  - PRURITUS [None]
  - RASH GENERALISED [None]
  - SWELLING FACE [None]
  - WEIGHT INCREASED [None]
